FAERS Safety Report 5782260-8 (Version None)
Quarter: 2008Q2

REPORT INFORMATION
  Report Type: 
  Country: None (occurrence: None)
  Receive Date: 20080623
  Receipt Date: 20080607
  Transmission Date: 20081010
  Serious: No
  Sender: FDA-Public Use
  Company Number: US-PFIZER INC-2008037438

PATIENT
  Sex: Female
  Weight: 63.5 kg

DRUGS (4)
  1. CHANTIX [Suspect]
     Indication: SMOKING CESSATION THERAPY
  2. XANAX [Concomitant]
  3. HYDROCODONE [Concomitant]
  4. LOTREL [Concomitant]
     Indication: HYPERTENSION

REACTIONS (5)
  - MOOD SWINGS [None]
  - NIGHTMARE [None]
  - NO ADVERSE EVENT [None]
  - SUICIDE ATTEMPT [None]
  - THINKING ABNORMAL [None]
